FAERS Safety Report 8041080-4 (Version None)
Quarter: 2012Q1

REPORT INFORMATION
  Report Type: 
  Country: None (occurrence: None)
  Receive Date: 20120112
  Receipt Date: 20120105
  Transmission Date: 20120608
  Serious: Yes (Other)
  Sender: FDA-Public Use
  Company Number: US-CELGENEUS-163-20785-12010549

PATIENT
  Sex: Female

DRUGS (3)
  1. THALOMID [Suspect]
     Indication: MULTIPLE MYELOMA
     Dosage: 50 MILLIGRAM
     Route: 048
     Dates: start: 20111024, end: 20111026
  2. MELPHALAN HYDROCHLORIDE [Concomitant]
     Route: 065
     Dates: start: 20111011, end: 20111014
  3. PREDNISONE TAB [Concomitant]
     Route: 065
     Dates: start: 20111011, end: 20111014

REACTIONS (1)
  - INFLAMMATORY PSEUDOTUMOUR [None]
